FAERS Safety Report 19295002 (Version 1)
Quarter: 2021Q2

REPORT INFORMATION
  Report Type: Spontaneous
  Country: US (occurrence: US)
  Receive Date: 20210524
  Receipt Date: 20210524
  Transmission Date: 20210717
  Serious: Yes (Other)
  Sender: FDA-Public Use
  Company Number: US-GW PHARMA-202105USGW02448

PATIENT

DRUGS (2)
  1. EPIDIOLEX [Suspect]
     Active Substance: CANNABIDIOL
     Indication: SEIZURE
     Dosage: 45.23 MG/KG/DAY, 900 MILLIGRAM, QD (400MG EVERY MORNING AND 500MG EVERY NIGHT AT BEDTIME); FIRST SHI
     Route: 048
     Dates: start: 2021
  2. SABRIL [Concomitant]
     Active Substance: VIGABATRIN
     Indication: SEIZURE
     Dosage: 1000 MILLIGRAM, BID (FIRST SHIPPED ON 01 AUG 2014)
     Route: 065
     Dates: start: 201408

REACTIONS (3)
  - Product dose omission issue [Unknown]
  - Seizure [Unknown]
  - Prescribed overdose [Unknown]

NARRATIVE: CASE EVENT DATE: 20210513
